FAERS Safety Report 9363655 (Version 1)
Quarter: 2013Q2

REPORT INFORMATION
  Report Type: Report from Study
  Country: CA (occurrence: CA)
  Receive Date: 20130624
  Receipt Date: 20130624
  Transmission Date: 20140414
  Serious: Yes (Other)
  Sender: FDA-Public Use
  Company Number: CA-JNJFOC-20130613288

PATIENT
  Sex: Female
  Weight: 60 kg

DRUGS (5)
  1. REMICADE [Suspect]
     Indication: COLITIS ULCERATIVE
     Route: 042
     Dates: start: 20130419
  2. REMICADE [Suspect]
     Indication: COLITIS ULCERATIVE
     Route: 042
     Dates: start: 20130308
  3. SALOFALK [Concomitant]
     Route: 065
  4. IMURAN [Concomitant]
     Route: 065
  5. TRICYCLEN [Concomitant]
     Route: 065

REACTIONS (2)
  - Weight decreased [Unknown]
  - Colitis ulcerative [Not Recovered/Not Resolved]
